FAERS Safety Report 8786258 (Version 2)
Quarter: 2012Q4

REPORT INFORMATION
  Report Type: 
  Country: US (occurrence: US)
  Receive Date: 20120914
  Receipt Date: 20120929
  Transmission Date: 20130627
  Serious: Yes (Hospitalization, Other)
  Sender: FDA-Public Use
  Company Number: US-MERCK-1209USA000449

PATIENT
  Age: 57 Year
  Sex: Male

DRUGS (10)
  1. PEGINTRON [Suspect]
     Indication: HEPATITIS C
     Dosage: 150 Microgram, qw
     Route: 058
     Dates: start: 20120407, end: 20120515
  2. REBETOL [Suspect]
     Indication: HEPATITIS C
     Dosage: UNK
     Dates: start: 201205
  3. PEGASYS [Suspect]
     Indication: HEPATITIS C
     Dosage: UNK
     Dates: start: 201205
  4. TELAPREVIR [Suspect]
     Indication: HEPATITIS C
     Dosage: UNK
     Dates: start: 201205
  5. SPIRONOLACTONE [Concomitant]
     Dosage: UNK
     Dates: start: 201205
  6. NEXIUM [Concomitant]
     Dosage: UNK
     Dates: start: 201205
  7. LEVOXYL [Concomitant]
     Dosage: UNK
     Dates: start: 201205
  8. LASIX (FUROSEMIDE) [Concomitant]
     Dosage: UNK
     Dates: start: 201205
  9. LACTULOSE [Concomitant]
     Dosage: UNK
     Dates: start: 201205
  10. PROCRIT [Concomitant]
     Dosage: UNK
     Dates: start: 201205

REACTIONS (2)
  - Stevens-Johnson syndrome [Unknown]
  - Rash [Unknown]
